FAERS Safety Report 21141891 (Version 1)
Quarter: 2022Q3

REPORT INFORMATION
  Report Type: Spontaneous
  Country: US (occurrence: None)
  Receive Date: 20220728
  Receipt Date: 20220728
  Transmission Date: 20221027
  Serious: No
  Sender: FDA-Public Use
  Company Number: None

PATIENT
  Age: 81 Year
  Sex: Female

DRUGS (17)
  1. VERZENIO [Suspect]
     Active Substance: ABEMACICLIB
     Indication: Breast cancer female
     Dosage: FREQUENCY : TWICE A DAY;?
     Route: 048
     Dates: start: 20220111, end: 20220727
  2. CALCIUM\VITAMIN D [Concomitant]
     Active Substance: CALCIUM\VITAMIN D
  3. CHONDROITIN-GLUCOSAMINE [Concomitant]
  4. FAMOTIDINE [Concomitant]
     Active Substance: FAMOTIDINE
  5. FASLODEX [Concomitant]
     Active Substance: FULVESTRANT
  6. FUROSEMIDE [Concomitant]
     Active Substance: FUROSEMIDE
  7. GLUCOSAMINE [Concomitant]
     Active Substance: GLUCOSAMINE
  8. HYDROCHLOROTHIAZIDE [Concomitant]
     Active Substance: HYDROCHLOROTHIAZIDE
  9. LISINOPRIL [Concomitant]
  10. LOPERAMIDE [Concomitant]
     Active Substance: LOPERAMIDE
  11. MYRBETRIQ [Concomitant]
     Active Substance: MIRABEGRON
  12. OMNIPAQUE [Concomitant]
     Active Substance: IOHEXOL
  13. POTASSIUM CHLORIDE [Concomitant]
     Active Substance: POTASSIUM CHLORIDE
  14. TUMS EX [Concomitant]
     Active Substance: CALCIUM CARBONATE
  15. UDDERLY SMOOTH EXTERNAL CREAM [Concomitant]
  16. VITAMIN D [Concomitant]
     Active Substance: VITAMIN D NOS
  17. XGEVA [Concomitant]
     Active Substance: DENOSUMAB

REACTIONS (2)
  - Pulmonary fibrosis [None]
  - Therapy cessation [None]
